FAERS Safety Report 6273276-6 (Version None)
Quarter: 2009Q3

REPORT INFORMATION
  Report Type: 
  Country: None (occurrence: None)
  Receive Date: 20090720
  Receipt Date: 20090708
  Transmission Date: 20100115
  Serious: Yes (Hospitalization)
  Sender: FDA-Public Use
  Company Number: JP-ROCHE-619029

PATIENT
  Sex: Male
  Weight: 44 kg

DRUGS (9)
  1. CAPECITABINE [Suspect]
     Indication: GASTRIC CANCER
     Dosage: FREQUENCY: DAYS 1-14 EVERY 3 WEEKS
     Route: 048
     Dates: start: 20080818
  2. PLACEBO [Suspect]
     Indication: GASTRIC CANCER
     Dosage: DAY 1 EVERY 3 WEEKS
     Route: 042
     Dates: start: 20080818
  3. CISPLATIN [Suspect]
     Indication: GASTRIC CANCER
     Dosage: DAY 1 EVERY 3 WEEKS
     Route: 042
     Dates: start: 20080818
  4. TEPRENONE [Concomitant]
     Dates: start: 20080807
  5. LANSOPRAZOLE [Concomitant]
     Dates: start: 20080807
  6. MAGNESIUM OXIDE [Concomitant]
     Dates: start: 20080820
  7. UREA [Concomitant]
     Dosage: FREQUENCY: AS NECESSARY
     Dates: start: 20081010
  8. PAROXETINE HCL [Concomitant]
     Dates: start: 20081127
  9. ZOLPIDEM TARTRATE [Concomitant]
     Dates: start: 20090119

REACTIONS (2)
  - AFFERENT LOOP SYNDROME [None]
  - OBSTRUCTION GASTRIC [None]
